FAERS Safety Report 12070127 (Version 2)
Quarter: 2016Q4

REPORT INFORMATION
  Report Type: Spontaneous
  Country: JP (occurrence: JP)
  Receive Date: 20160211
  Receipt Date: 20161021
  Transmission Date: 20170206
  Serious: No
  Sender: FDA-Public Use
  Company Number: JP-JNJFOC-20160202793

PATIENT
  Sex: Female

DRUGS (1)
  1. RISPERDAL [Suspect]
     Active Substance: RISPERIDONE
     Indication: PSYCHIATRIC SYMPTOM
     Dosage: BEFORE SLEEP
     Route: 048

REACTIONS (3)
  - Insomnia [Unknown]
  - Product taste abnormal [Unknown]
  - Burning sensation [Unknown]
